FAERS Safety Report 13165896 (Version 2)
Quarter: 2017Q1

REPORT INFORMATION
  Report Type: Spontaneous
  Country: US (occurrence: US)
  Receive Date: 20170131
  Receipt Date: 20170206
  Transmission Date: 20170428
  Serious: No
  Sender: FDA-Public Use
  Company Number: US-009507513-1701USA005575

PATIENT
  Sex: Male

DRUGS (2)
  1. OMEGA-3 MARINE TRIGLYCERIDES [Concomitant]
     Active Substance: FISH OIL
  2. ZEPATIER [Suspect]
     Active Substance: ELBASVIR\GRAZOPREVIR
     Indication: HEPATITIS C
     Dosage: 1 TABLET, QD, TOTAL DAILY DOSE: 50-100MG
     Route: 048
     Dates: start: 201612

REACTIONS (2)
  - Headache [Unknown]
  - Arthralgia [Unknown]
